FAERS Safety Report 13508346 (Version 1)
Quarter: 2017Q2

REPORT INFORMATION
  Report Type: Spontaneous
  Country: US (occurrence: US)
  Receive Date: 20170503
  Receipt Date: 20170503
  Transmission Date: 20170830
  Serious: No
  Sender: FDA-Public Use
  Company Number: US-ASTRAZENECA-2016SE93816

PATIENT
  Sex: Female
  Weight: 61.2 kg

DRUGS (5)
  1. GLYBURIDE. [Concomitant]
     Active Substance: GLYBURIDE
     Dosage: UNKNOWN
     Route: 065
  2. VIVELLE.DOT [Concomitant]
     Dosage: TWICE A WEEK
     Route: 065
  3. SIMVASTIN [Concomitant]
     Active Substance: SIMVASTATIN
     Route: 065
  4. BYDUREON [Suspect]
     Active Substance: EXENATIDE
     Indication: TYPE 2 DIABETES MELLITUS
     Route: 065
     Dates: start: 201606, end: 201607
  5. VICTOZA [Concomitant]
     Active Substance: LIRAGLUTIDE
     Dosage: DAILY
     Route: 065

REACTIONS (2)
  - Injection site pruritus [Unknown]
  - Injection site mass [Unknown]
